FAERS Safety Report 8130262-9 (Version None)
Quarter: 2012Q1

REPORT INFORMATION
  Report Type: 
  Country: None (occurrence: None)
  Receive Date: 20120210
  Receipt Date: 20120203
  Transmission Date: 20120608
  Serious: Yes (Other)
  Sender: FDA-Public Use
  Company Number: PHHY2010CA55339

PATIENT
  Sex: Female

DRUGS (3)
  1. CHEMOTHERAPEUTICS NOS [Concomitant]
  2. ZOMETA [Suspect]
     Indication: BREAST CANCER
     Dosage: 4 MG, EVERY 4 WEEKS
     Route: 042
     Dates: start: 20100814
  3. ZOLEDRONOC ACID [Suspect]
     Dosage: 5 MG/100ML
     Route: 042

REACTIONS (10)
  - CARBOHYDRATE ANTIGEN 15-3 INCREASED [None]
  - DRUG DISPENSING ERROR [None]
  - BLOOD PRESSURE INCREASED [None]
  - FATIGUE [None]
  - HOT FLUSH [None]
  - CARBOHYDRATE ANTIGEN 125 INCREASED [None]
  - VOMITING [None]
  - DIARRHOEA [None]
  - FEELING COLD [None]
  - DEHYDRATION [None]
